FAERS Safety Report 13667746 (Version 1)
Quarter: 2017Q2

REPORT INFORMATION
  Report Type: Spontaneous
  Country: FR (occurrence: FR)
  Receive Date: 20170620
  Receipt Date: 20170620
  Transmission Date: 20170830
  Serious: Yes (Other)
  Sender: FDA-Public Use
  Company Number: FR-ACCORD-052636

PATIENT

DRUGS (1)
  1. ARIPIPRAZOLE. [Suspect]
     Active Substance: ARIPIPRAZOLE
     Indication: SCHIZOAFFECTIVE DISORDER
     Dosage: OVER 18 DAYS UP TO 30 MG/DAY

REACTIONS (2)
  - Paradoxical drug reaction [Recovered/Resolved]
  - Psychomotor hyperactivity [Recovered/Resolved]
